FAERS Safety Report 7957805-X (Version None)
Quarter: 2011Q4

REPORT INFORMATION
  Report Type: 
  Country: None (occurrence: None)
  Receive Date: 20111130
  Receipt Date: 20111117
  Transmission Date: 20120403
  Serious: Yes (Death, Other)
  Sender: FDA-Public Use
  Company Number: EU-2011-10258

PATIENT

DRUGS (1)
  1. SAMSCA [Suspect]
     Dosage: 30 MG MILLIGRAM(S)

REACTIONS (2)
  - OSMOTIC DEMYELINATION SYNDROME [None]
  - RAPID CORRECTION OF HYPONATRAEMIA [None]
